FAERS Safety Report 6438450-4 (Version None)
Quarter: 2009Q4

REPORT INFORMATION
  Report Type: 
  Country: None (occurrence: None)
  Receive Date: 20091110
  Receipt Date: 20091029
  Transmission Date: 20100525
  Serious: Yes (Hospitalization)
  Sender: FDA-Public Use
  Company Number: 6055586

PATIENT
  Age: 65 Year
  Sex: Female

DRUGS (3)
  1. LEVOTHYROXINE SODIUM [Suspect]
     Indication: DRUG USE FOR UNKNOWN INDICATION
     Dosage: 1 DOSAGE FORMS (1 DOSAGE FORMS, 1 IN 1 D) ORAL
     Route: 048
  2. REMICADE [Suspect]
     Indication: SAPHO SYNDROME
     Dosage: (3 PERFUSIONS) INTRAVENOUS
     Route: 042
     Dates: start: 20090603, end: 20090715
  3. EUPRESSYL (30 MG, TABLET) (URAPIDIL) [Suspect]
     Indication: DRUG USE FOR UNKNOWN INDICATION
     Dosage: 2 DOSAGE FORMS (1 DOSAGE FORMS, 2 IN 1 D) ORAL
     Route: 048

REACTIONS (1)
  - TUBERCULOSIS [None]
